FAERS Safety Report 6829118-0 (Version None)
Quarter: 2010Q3

REPORT INFORMATION
  Report Type: 
  Country: None (occurrence: None)
  Receive Date: 20100709
  Receipt Date: 20070228
  Transmission Date: 20110219
  Serious: No
  Sender: FDA-Public Use
  Company Number: US-PFIZER INC-2007016546

PATIENT
  Sex: Female

DRUGS (3)
  1. CHANTIX [Suspect]
     Indication: SMOKING CESSATION THERAPY
     Dates: start: 20070201
  2. PREDNISONE TABLET [Suspect]
     Indication: BRONCHITIS CHRONIC
     Dates: start: 20070201
  3. ADVAIR DISKUS 100/50 [Concomitant]
     Indication: BRONCHITIS CHRONIC

REACTIONS (3)
  - HEADACHE [None]
  - PALPITATIONS [None]
  - RESTLESSNESS [None]
